FAERS Safety Report 11519101 (Version 2)
Quarter: 2015Q4

REPORT INFORMATION
  Report Type: Report from Study
  Country: JP (occurrence: JP)
  Receive Date: 20150917
  Receipt Date: 20151006
  Transmission Date: 20160304
  Serious: Yes (Death, Life-Threatening)
  Sender: FDA-Public Use
  Company Number: JP-009507513-1508JPN012472

PATIENT
  Age: 66 Year
  Sex: Male
  Weight: 59 kg

DRUGS (7)
  1. CUBICIN [Suspect]
     Active Substance: DAPTOMYCIN
     Indication: SEPSIS
     Dosage: 6 MG/KG, 1/1 DAY
     Route: 041
     Dates: start: 20150808, end: 20150812
  2. PRECEDEX [Concomitant]
     Active Substance: DEXMEDETOMIDINE HYDROCHLORIDE
     Dosage: 800 MICROGRAM, QD
     Route: 051
     Dates: start: 20150725
  3. ONOACT [Concomitant]
     Active Substance: LANDIOLOL HYDROCHLORIDE
     Dosage: 375 MG, QD
     Route: 051
     Dates: start: 20150727, end: 20150814
  4. HUMULIN R [Concomitant]
     Active Substance: INSULIN HUMAN
     Dosage: 72 (UNDER 1000 UNIT) QD
     Route: 051
     Dates: start: 20150729
  5. FENTANYL. [Concomitant]
     Active Substance: FENTANYL
     Dosage: 3 MG, QD
     Route: 051
     Dates: start: 20150726
  6. CLINDAMYCIN [Concomitant]
     Active Substance: CLINDAMYCIN\CLINDAMYCIN PHOSPHATE
     Indication: SEPSIS
     Dosage: 1200 MG, QD.DIVIDED DOSE FREQUENCY UNKNOWN)
     Route: 041
     Dates: start: 20150804, end: 20150806
  7. PREDONINE [Concomitant]
     Active Substance: PREDNISOLONE\PREDNISOLONE ACETATE\PREDNISOLONE SODIUM SUCCINATE
     Dosage: 50 MG, QD
     Route: 051
     Dates: start: 20150729

REACTIONS (5)
  - Gastrointestinal perforation [Fatal]
  - Sepsis [Recovering/Resolving]
  - Blood creatine phosphokinase increased [Not Recovered/Not Resolved]
  - Hepatic function abnormal [Recovering/Resolving]
  - Sepsis [Fatal]

NARRATIVE: CASE EVENT DATE: 20150810
